FAERS Safety Report 7196371-6 (Version None)
Quarter: 2010Q4

REPORT INFORMATION
  Report Type: 
  Country: None (occurrence: None)
  Receive Date: 20101223
  Receipt Date: 20101022
  Transmission Date: 20110411
  Serious: No
  Sender: FDA-Public Use
  Company Number: US-AMGEN-USASP2010002156

PATIENT

DRUGS (2)
  1. ENBREL [Suspect]
     Indication: PSORIATIC ARTHROPATHY
     Dates: start: 20101019
  2. SULFAZALAZINE (AZULFIDINE) [Concomitant]
     Dates: start: 20100901

REACTIONS (4)
  - MIGRAINE [None]
  - PAIN IN EXTREMITY [None]
  - SWELLING [None]
  - THERAPEUTIC RESPONSE DECREASED [None]
